FAERS Safety Report 25469202 (Version 1)
Quarter: 2025Q2

REPORT INFORMATION
  Report Type: Spontaneous
  Country: ES (occurrence: ES)
  Receive Date: 20250623
  Receipt Date: 20250623
  Transmission Date: 20250716
  Serious: Yes (Hospitalization)
  Sender: ORGANON
  Company Number: None

PATIENT
  Age: 19 Year
  Sex: Female
  Weight: 60 kg

DRUGS (2)
  1. SIMVASTATIN [Interacting]
     Active Substance: SIMVASTATIN
     Indication: Suicide attempt
     Route: 048
     Dates: start: 20241217, end: 20241217
  2. ACETAMINOPHEN [Interacting]
     Active Substance: ACETAMINOPHEN
     Indication: Suicide attempt
     Route: 048
     Dates: start: 20241217, end: 20241217

REACTIONS (3)
  - Hypertransaminasaemia [Recovered/Resolved]
  - Intentional overdose [Recovered/Resolved]
  - Product use in unapproved indication [Unknown]

NARRATIVE: CASE EVENT DATE: 20241217
